FAERS Safety Report 9721759 (Version 1)
Quarter: 2013Q4

REPORT INFORMATION
  Report Type: Spontaneous
  Country: US (occurrence: US)
  Receive Date: 20131201
  Receipt Date: 20131201
  Transmission Date: 20140711
  Serious: No
  Sender: FDA-Public Use
  Company Number: US-ABBVIE-13P-163-1160872-00

PATIENT
  Sex: Male
  Weight: 61.29 kg

DRUGS (1)
  1. ANDROGEL [Suspect]
     Indication: BLOOD TESTOSTERONE DECREASED
     Dosage: 1 PUMP PER DAY
     Dates: start: 201309

REACTIONS (2)
  - Drug administered at inappropriate site [Unknown]
  - Insomnia [Not Recovered/Not Resolved]
